FAERS Safety Report 9924689 (Version 2)
Quarter: 2016Q2

REPORT INFORMATION
  Report Type: Report from Study
  Country: US (occurrence: US)
  Receive Date: 20140226
  Receipt Date: 20160418
  Transmission Date: 20160815
  Serious: Yes (Other)
  Sender: FDA-Public Use
  Company Number: US-ROCHE-1330351

PATIENT
  Sex: Female
  Weight: 74 kg

DRUGS (10)
  1. FISH OIL [Concomitant]
     Active Substance: FISH OIL
  2. LUCENTIS [Suspect]
     Active Substance: RANIBIZUMAB
     Indication: NEOVASCULAR AGE-RELATED MACULAR DEGENERATION
     Route: 050
     Dates: start: 20060911
  3. PHENYLEPHRINE [Concomitant]
     Active Substance: PHENYLEPHRINE\PHENYLEPHRINE HYDROCHLORIDE
  4. TROPICAMIDE. [Concomitant]
     Active Substance: TROPICAMIDE
  5. LUCENTIS [Suspect]
     Active Substance: RANIBIZUMAB
     Indication: MACULAR FIBROSIS
  6. ASPIRIN. [Concomitant]
     Active Substance: ASPIRIN
  7. AVASTIN [Suspect]
     Active Substance: BEVACIZUMAB
     Indication: PRODUCT USED FOR UNKNOWN INDICATION
     Route: 031
     Dates: start: 20080505, end: 20090803
  8. LISINOPRIL. [Concomitant]
     Active Substance: LISINOPRIL
  9. PROPARACAINE [Concomitant]
     Active Substance: PROPARACAINE
  10. PRESERVISION AREDS [Concomitant]
     Active Substance: MINERALS\VITAMINS

REACTIONS (8)
  - Macular hole [Unknown]
  - Retinal degeneration [Unknown]
  - Macular fibrosis [Unknown]
  - Visual field defect [Unknown]
  - Macular oedema [Unknown]
  - Retinal depigmentation [Unknown]
  - Visual acuity reduced [Unknown]
  - Macular degeneration [Unknown]
